FAERS Safety Report 25877569 (Version 1)
Quarter: 2025Q4

REPORT INFORMATION
  Report Type: Report from Study
  Country: US (occurrence: US)
  Receive Date: 20251003
  Receipt Date: 20251003
  Transmission Date: 20260118
  Serious: Yes (Hospitalization, Other)
  Sender: MERZ
  Company Number: US-ACORDA THERAPEUTICS IRELAND LIMITED-ACO_178699_2025

PATIENT

DRUGS (1)
  1. INBRIJA [Suspect]
     Active Substance: LEVODOPA
     Indication: Parkinson^s disease
     Dosage: 1 DOSAGE FORM, PRN (UP TO 5 TIMES DAILY)
     Dates: start: 20250808, end: 20250808

REACTIONS (8)
  - Blood sodium decreased [Unknown]
  - Parkinson^s disease [Recovered/Resolved]
  - Heart rate increased [Recovered/Resolved]
  - Anxiety [Not Recovered/Not Resolved]
  - Vomiting [Unknown]
  - Nausea [Unknown]
  - Patient dissatisfaction with treatment [Not Recovered/Not Resolved]
  - Prescribed underdose [Unknown]

NARRATIVE: CASE EVENT DATE: 20250808
